FAERS Safety Report 21016246 (Version 4)
Quarter: 2022Q4

REPORT INFORMATION
  Report Type: Spontaneous
  Country: CA (occurrence: CA)
  Receive Date: 20220628
  Receipt Date: 20221013
  Transmission Date: 20230112
  Serious: No
  Sender: FDA-Public Use
  Company Number: CA-BRISTOL-MYERS SQUIBB COMPANY-2022-058802

PATIENT
  Age: 44 Year
  Sex: Female

DRUGS (1)
  1. REVLIMID [Suspect]
     Active Substance: LENALIDOMIDE
     Indication: Product used for unknown indication
     Dosage: LAST RECENT DISPENSE WAS ON 10-MAY-2022.
     Route: 065
     Dates: start: 20220202

REACTIONS (1)
  - Human chorionic gonadotropin increased [Not Recovered/Not Resolved]

NARRATIVE: CASE EVENT DATE: 20220604
